FAERS Safety Report 7335007-8 (Version None)
Quarter: 2011Q1

REPORT INFORMATION
  Report Type: 
  Country: None (occurrence: None)
  Receive Date: 20110307
  Receipt Date: 20110301
  Transmission Date: 20110831
  Serious: Yes (Hospitalization)
  Sender: FDA-Public Use
  Company Number: GB-ROCHE-762919

PATIENT
  Sex: Male

DRUGS (4)
  1. EPIRUBICIN [Suspect]
     Indication: GASTRIC CANCER
     Dosage: TREATMENT DELAYED,DATE OF MOST RECENT ADMINISTARTION: 28 OCT 2010
     Route: 042
     Dates: start: 20101007
  2. CAPECITABINE [Suspect]
     Indication: GASTRIC CANCER
     Dosage: TREATMENT DELAYED,DATE OF MOST RECENT ADMINISTARTION: 28 OCT 2010
     Route: 042
     Dates: start: 20101007
  3. BEVACIZUMAB [Suspect]
     Indication: GASTRIC CANCER
     Dosage: TREATMENT STOPPED,DATE OF MOST RECENT ADMINISTARTION: 28 OCT 2010
     Route: 042
     Dates: start: 20101007
  4. CISPLATIN [Suspect]
     Indication: GASTRIC CANCER
     Dosage: TREATMENT DELAYED,DATE OF MOST RECENT ADMINISTARTION: 28 OCT 2010
     Route: 042
     Dates: start: 20101007

REACTIONS (2)
  - DEEP VEIN THROMBOSIS [None]
  - OEDEMA PERIPHERAL [None]
